FAERS Safety Report 6290612-5 (Version None)
Quarter: 2009Q3

REPORT INFORMATION
  Report Type: 
  Country: None (occurrence: None)
  Receive Date: 20090727
  Receipt Date: 20080717
  Transmission Date: 20100115
  Serious: Yes (Hospitalization)
  Sender: FDA-Public Use
  Company Number: OMPQ-PR-0807S-0464

PATIENT
  Age: 32 Year
  Sex: Female

DRUGS (2)
  1. OMNIPAQUE 140 [Suspect]
     Indication: ABDOMINAL PAIN LOWER
     Dosage: 100 ML, SINGLE DOSE, I.V.
     Route: 042
     Dates: start: 20080714, end: 20080714
  2. ZOLOFT [Concomitant]

REACTIONS (1)
  - ANAPHYLACTOID REACTION [None]
